FAERS Safety Report 6331809-5 (Version None)
Quarter: 2009Q3

REPORT INFORMATION
  Report Type: 
  Country: None (occurrence: None)
  Receive Date: 20090826
  Receipt Date: 20090814
  Transmission Date: 20100115
  Serious: Yes (Hospitalization, Other)
  Sender: FDA-Public Use
  Company Number: ADR16622009

PATIENT
  Age: 54 Year
  Sex: Male

DRUGS (6)
  1. CIPROFLOXACIN [Suspect]
     Indication: URINARY TRACT INFECTION
     Dosage: 500MG (2/1 DAY) ORAL
     Route: 048
     Dates: start: 20090106, end: 20090118
  2. VIRAMUNE [Concomitant]
  3. CEPHRADINE [Concomitant]
  4. COTRIM [Concomitant]
  5. TETRACYCLINE [Concomitant]
  6. TRUVADA [Concomitant]

REACTIONS (5)
  - JAUNDICE [None]
  - LIVER FUNCTION TEST ABNORMAL [None]
  - NEUTROPENIA [None]
  - THROMBOCYTOPENIA [None]
  - URINARY TRACT INFECTION [None]
